FAERS Safety Report 25729555 (Version 1)
Quarter: 2025Q3

REPORT INFORMATION
  Report Type: Report from Study
  Country: CA (occurrence: CA)
  Receive Date: 20250827
  Receipt Date: 20250827
  Transmission Date: 20251021
  Serious: Yes (Other)
  Sender: CELLTRION
  Company Number: CA-CELLTRION INC.-2025CA029763

PATIENT

DRUGS (5)
  1. USTEKINUMAB [Suspect]
     Active Substance: USTEKINUMAB
     Indication: Parapsoriasis
     Route: 058
     Dates: start: 20171114
  2. USTEKINUMAB [Suspect]
     Active Substance: USTEKINUMAB
     Indication: Psoriasis
     Route: 058
     Dates: start: 20250228
  3. RABEPRAZOLE [Concomitant]
     Active Substance: RABEPRAZOLE
  4. FLUOXETINE [Concomitant]
     Active Substance: FLUOXETINE HYDROCHLORIDE
  5. PREGABALIN [Concomitant]
     Active Substance: PREGABALIN

REACTIONS (5)
  - Neuroleptic malignant syndrome [Recovering/Resolving]
  - Illness [Recovering/Resolving]
  - Fatigue [Unknown]
  - Inappropriate schedule of product administration [Recovering/Resolving]
  - Intentional product use issue [Unknown]

NARRATIVE: CASE EVENT DATE: 20250201
